FAERS Safety Report 5158395-X (Version None)
Quarter: 2006Q4

REPORT INFORMATION
  Report Type: 
  Country: None (occurrence: None)
  Receive Date: 20061128
  Receipt Date: 20061115
  Transmission Date: 20070319
  Serious: Yes (Other)
  Sender: FDA-Public Use
  Company Number: PHFR2006GB03401

PATIENT

DRUGS (1)
  1. CLOZARIL [Suspect]
     Route: 048

REACTIONS (2)
  - BLOOD CALCIUM INCREASED [None]
  - HYPERPARATHYROIDISM [None]
